FAERS Safety Report 8102346-2 (Version None)
Quarter: 2012Q1

REPORT INFORMATION
  Report Type: 
  Country: None (occurrence: None)
  Receive Date: 20120131
  Receipt Date: 20120131
  Transmission Date: 20120608
  Serious: Yes (Hospitalization)
  Sender: FDA-Public Use
  Company Number: None

PATIENT
  Age: 75 Year
  Sex: Male
  Weight: 74.9 kg

DRUGS (2)
  1. ENOXAPARIN [Suspect]
     Indication: DEEP VEIN THROMBOSIS
     Dosage: 75 MG BID SQ
     Route: 058
     Dates: start: 20120113, end: 20120126
  2. ENOXAPARIN [Suspect]
     Indication: ATRIAL FIBRILLATION
     Dosage: 75 MG BID SQ
     Route: 058
     Dates: start: 20120113, end: 20120126

REACTIONS (2)
  - ANTI-PLATELET ANTIBODY POSITIVE [None]
  - THROMBOCYTOPENIA [None]
